FAERS Safety Report 6108619-7 (Version None)
Quarter: 2009Q1

REPORT INFORMATION
  Report Type: 
  Country: None (occurrence: None)
  Receive Date: 20090305
  Receipt Date: 20090225
  Transmission Date: 20090719
  Serious: Yes (Other)
  Sender: FDA-Public Use
  Company Number: 201775

PATIENT
  Age: 32 Year
  Sex: Male

DRUGS (4)
  1. FENTANYL INJECTION ^DBL^  (FENTANYL) [Suspect]
     Indication: INDUCTION OF ANAESTHESIA
  2. PROPOFOL [Suspect]
     Indication: INDUCTION OF ANAESTHESIA
  3. (CISATRACURIUM) [Suspect]
     Indication: INDUCTION OF ANAESTHESIA
  4. CEFAZOLIN AND DEXTROSE [Suspect]
     Indication: INDUCTION OF ANAESTHESIA

REACTIONS (3)
  - ANAPHYLACTIC REACTION [None]
  - BRONCHOSPASM [None]
  - OBSTRUCTIVE AIRWAYS DISORDER [None]
